FAERS Safety Report 5225965-X (Version None)
Quarter: 2007Q1

REPORT INFORMATION
  Report Type: 
  Country: None (occurrence: None)
  Receive Date: 20070129
  Receipt Date: 20070116
  Transmission Date: 20070707
  Serious: Yes (Death)
  Sender: FDA-Public Use
  Company Number: 2007010022

PATIENT
  Age: 6 Year
  Sex: Male

DRUGS (1)
  1. CARISOPRODOL [Suspect]
     Indication: ILL-DEFINED DISORDER
     Dates: start: 20040801

REACTIONS (2)
  - OVERDOSE [None]
  - VICTIM OF HOMICIDE [None]
